FAERS Safety Report 9648926 (Version 1)
Quarter: 2013Q4

REPORT INFORMATION
  Report Type: Spontaneous
  Country: US (occurrence: US)
  Receive Date: 20131028
  Receipt Date: 20131028
  Transmission Date: 20140711
  Serious: Yes (Other)
  Sender: FDA-Public Use
  Company Number: US-SA-2013SA108566

PATIENT
  Sex: Female

DRUGS (1)
  1. LANTUS [Suspect]
     Route: 051

REACTIONS (3)
  - Retinopathy [Unknown]
  - Eye haemorrhage [Unknown]
  - Visual acuity reduced [Unknown]
